FAERS Safety Report 6233920-6 (Version None)
Quarter: 2009Q2

REPORT INFORMATION
  Report Type: 
  Country: None (occurrence: None)
  Receive Date: 20090618
  Receipt Date: 20090610
  Transmission Date: 20091009
  Serious: Yes (Other)
  Sender: FDA-Public Use
  Company Number: GB-RANBAXY-2009US-24742

PATIENT

DRUGS (1)
  1. PROCTOSOL-HC [Suspect]
     Indication: ECZEMA
     Dosage: 1 %, TID
     Route: 061

REACTIONS (1)
  - CATARACT [None]
